FAERS Safety Report 4356901-6 (Version None)
Quarter: 2004Q2

REPORT INFORMATION
  Report Type: 
  Country: None (occurrence: None)
  Receive Date: 20040507
  Receipt Date: 20040421
  Transmission Date: 20050107
  Serious: Yes (Death)
  Sender: FDA-Public Use
  Company Number: JP_040302888

PATIENT
  Age: 63 Year
  Sex: Female
  Weight: 63 kg

DRUGS (7)
  1. ZYPREXA [Suspect]
     Indication: SCHIZOPHRENIA, PARANOID TYPE
     Dosage: 7.5 MG DAY
     Route: 048
     Dates: start: 20021228
  2. RISPERDAL [Concomitant]
  3. HIRNAMIN        (LEVOMEPROMAZINE) [Concomitant]
  4. DORAL [Concomitant]
  5. GASMOTIN     (MOSAPRIDE CITRATE) [Concomitant]
  6. SENNOSIDE A [Concomitant]
  7. LEVOTOMIN (LEVOMEPROMAZINE MALEATE) [Concomitant]

REACTIONS (8)
  - AGGRESSION [None]
  - COMPLETED SUICIDE [None]
  - CONSTIPATION [None]
  - FAMILY STRESS [None]
  - INSOMNIA [None]
  - MULTIPLE DRUG OVERDOSE [None]
  - PARAESTHESIA [None]
  - PERSECUTORY DELUSION [None]
